FAERS Safety Report 20637844 (Version 1)
Quarter: 2022Q1

REPORT INFORMATION
  Report Type: Report from Study
  Country: PK (occurrence: PK)
  Receive Date: 20220325
  Receipt Date: 20220325
  Transmission Date: 20220423
  Serious: Yes (Death)
  Sender: FDA-Public Use
  Company Number: PK-NOVARTISPH-NVSC2022PK068665

PATIENT
  Age: 28 Year
  Sex: Male
  Weight: 68 kg

DRUGS (1)
  1. GLIVEC [Suspect]
     Active Substance: IMATINIB MESYLATE
     Indication: Philadelphia positive chronic myeloid leukaemia
     Dosage: 400 MG, QD
     Route: 048
     Dates: start: 20210903, end: 20220105

REACTIONS (2)
  - Renal failure [Fatal]
  - Cerebrovascular accident [Fatal]

NARRATIVE: CASE EVENT DATE: 20220216
